FAERS Safety Report 4293723-9 (Version None)
Quarter: 2004Q1

REPORT INFORMATION
  Report Type: 
  Country: None (occurrence: None)
  Receive Date: 20040212
  Receipt Date: 20040211
  Transmission Date: 20041129
  Serious: Yes (Death, Hospitalization)
  Sender: FDA-Public Use
  Company Number: FR-GLAXOSMITHKLINE-A0497576A

PATIENT
  Age: 67 Year
  Sex: Female

DRUGS (1)
  1. NAVELBINE [Suspect]
     Indication: BREAST CANCER METASTATIC
     Route: 042
     Dates: end: 20030101

REACTIONS (2)
  - CARDIAC FAILURE [None]
  - NEUTROPENIA [None]
